FAERS Safety Report 9290417 (Version 3)
Quarter: 2013Q2

REPORT INFORMATION
  Report Type: Spontaneous
  Country: JP (occurrence: JP)
  Receive Date: 20130515
  Receipt Date: 20130527
  Transmission Date: 20140414
  Serious: Yes (Death, Hospitalization, Other)
  Sender: FDA-Public Use
  Company Number: JP-PFIZER INC-2013145660

PATIENT
  Age: 57 Year
  Sex: Female
  Weight: 47.8 kg

DRUGS (2)
  1. LYRICA [Suspect]
     Indication: PAIN
     Dosage: 75 MG, 2X/DAY
     Route: 048
     Dates: start: 20130414, end: 20130422
  2. ALDACTONE [Suspect]
     Indication: OEDEMA
     Dosage: 50 MG, 1X/DAY
     Route: 048
     Dates: start: 20130322, end: 20130426

REACTIONS (2)
  - Stevens-Johnson syndrome [Recovering/Resolving]
  - Colon cancer [Fatal]
